FAERS Safety Report 15840074 (Version 1)
Quarter: 2019Q1

REPORT INFORMATION
  Report Type: Spontaneous
  Country: CA (occurrence: CA)
  Receive Date: 20190117
  Receipt Date: 20190117
  Transmission Date: 20190417
  Serious: Yes (Other)
  Sender: FDA-Public Use
  Company Number: CA-GILEAD-2019-0384464

PATIENT
  Age: 76 Year
  Sex: Male

DRUGS (4)
  1. ADVIL [IBUPROFEN] [Suspect]
     Active Substance: IBUPROFEN
     Indication: PRODUCT USED FOR UNKNOWN INDICATION
     Route: 065
  2. ZYDELIG [Suspect]
     Active Substance: IDELALISIB
     Indication: B-CELL LYMPHOMA
     Dosage: 150 MG, BID
     Route: 048
  3. ZYDELIG [Suspect]
     Active Substance: IDELALISIB
     Dosage: 150 MG
     Route: 048
  4. CELEBREX [Suspect]
     Active Substance: CELECOXIB
     Indication: PRODUCT USED FOR UNKNOWN INDICATION
     Route: 065

REACTIONS (16)
  - Abdominal distension [Recovered/Resolved]
  - Abdominal pain upper [Recovered/Resolved]
  - Drug hypersensitivity [Recovered/Resolved]
  - Thrombosis [Recovered/Resolved]
  - Nasopharyngitis [Recovered/Resolved]
  - Intestinal obstruction [Recovered/Resolved]
  - Middle insomnia [Recovered/Resolved]
  - Ototoxicity [Recovered/Resolved]
  - Oral infection [Recovered/Resolved]
  - Rhinitis [Recovered/Resolved]
  - Dizziness [Recovered/Resolved]
  - Fall [Recovered/Resolved]
  - Blood urine present [Recovered/Resolved]
  - Haemorrhage [Recovered/Resolved]
  - Rib fracture [Recovered/Resolved]
  - Accident [Recovered/Resolved]
